FAERS Safety Report 9496637 (Version 1)
Quarter: 2013Q3

REPORT INFORMATION
  Report Type: Spontaneous
  Country: US (occurrence: None)
  Receive Date: 20130903
  Receipt Date: 20130903
  Transmission Date: 20140515
  Serious: Yes (Death)
  Sender: FDA-Public Use
  Company Number: None

PATIENT
  Sex: Female

DRUGS (1)
  1. STIVARGA 40MG BAYER [Suspect]
     Dosage: 160MG  DAILY X 21 DAYS, OFF FOR 7 DAYS
     Route: 048
     Dates: start: 20130614, end: 20130624

REACTIONS (1)
  - Death [None]
